FAERS Safety Report 9711739 (Version 1)
Quarter: 2013Q4

REPORT INFORMATION
  Report Type: Spontaneous
  Country: US (occurrence: US)
  Receive Date: 20131126
  Receipt Date: 20131126
  Transmission Date: 20140711
  Serious: No
  Sender: FDA-Public Use
  Company Number: US-BRISTOL-MYERS SQUIBB COMPANY-18793877

PATIENT
  Sex: Female

DRUGS (10)
  1. BYDUREON 2MG SUSPENSION [Suspect]
     Route: 058
     Dates: start: 20130226, end: 20130413
  2. GLUCOPHAGE [Suspect]
  3. LANTUS [Concomitant]
  4. DIOVAN [Concomitant]
  5. LISINOPRIL [Concomitant]
  6. SERTRALINE [Concomitant]
  7. ATORVASTATIN [Concomitant]
  8. VITAMIN B12 [Concomitant]
  9. ASPIRIN [Concomitant]
  10. PROBIOTICA [Concomitant]

REACTIONS (5)
  - Gastroenteritis viral [Recovered/Resolved]
  - Vomiting [Not Recovered/Not Resolved]
  - Diarrhoea [Not Recovered/Not Resolved]
  - Abdominal pain upper [Recovered/Resolved]
  - Blood glucose increased [Not Recovered/Not Resolved]
